FAERS Safety Report 17151073 (Version 12)
Quarter: 2023Q4

REPORT INFORMATION
  Report Type: Spontaneous
  Country: BR (occurrence: BR)
  Receive Date: 20191213
  Receipt Date: 20231218
  Transmission Date: 20240110
  Serious: Yes (Hospitalization, Other)
  Sender: FDA-Public Use
  Company Number: BR-GLAXOSMITHKLINE-BR2019AMR113919

PATIENT

DRUGS (1)
  1. BENLYSTA [Suspect]
     Active Substance: BELIMUMAB
     Indication: Systemic lupus erythematosus
     Dosage: UNK, VIAL
     Dates: start: 20181109

REACTIONS (20)
  - Vascular occlusion [Recovering/Resolving]
  - Pneumonia [Recovered/Resolved]
  - Blood pressure abnormal [Recovered/Resolved]
  - Thrombosis [Unknown]
  - Intestinal obstruction [Unknown]
  - Surgery [Recovered/Resolved]
  - Weight fluctuation [Recovering/Resolving]
  - Hernia [Recovering/Resolving]
  - Asthenia [Unknown]
  - COVID-19 [Unknown]
  - Decreased immune responsiveness [Unknown]
  - Influenza [Unknown]
  - Viral infection [Unknown]
  - Troponin increased [Unknown]
  - Blood pressure increased [Unknown]
  - Therapy interrupted [Unknown]
  - Abdominal pain [Recovered/Resolved]
  - Social problem [Unknown]
  - Incorrect product administration duration [Unknown]
  - Product dose omission issue [Unknown]
